FAERS Safety Report 21653108 (Version 1)
Quarter: 2022Q4

REPORT INFORMATION
  Report Type: Spontaneous
  Country: BE (occurrence: BE)
  Receive Date: 20221128
  Receipt Date: 20221128
  Transmission Date: 20230113
  Serious: Yes (Death, Hospitalization)
  Sender: FDA-Public Use
  Company Number: BE-BEXIMCO-2022BEX00068

PATIENT
  Age: 61 Year
  Sex: Female
  Weight: 68 kg

DRUGS (8)
  1. FLECAINIDE ACETATE [Suspect]
     Active Substance: FLECAINIDE ACETATE
     Indication: Supraventricular tachyarrhythmia
     Dosage: 100 MG, 1X/DAY
  2. AMLODIPINE [Concomitant]
     Active Substance: AMLODIPINE BESYLATE
  3. BISOPROLOL [Concomitant]
     Active Substance: BISOPROLOL
  4. LISINOPRIL [Concomitant]
     Active Substance: LISINOPRIL
  5. TACROLIMUS [Concomitant]
     Active Substance: TACROLIMUS
  6. PREDNISOLONE [Concomitant]
     Active Substance: PREDNISOLONE
     Dosage: 3 MG, 1X/DAY
  7. LINAGLIPTIN [Concomitant]
     Active Substance: LINAGLIPTIN
  8. ROSUVASTATIN [Concomitant]
     Active Substance: ROSUVASTATIN

REACTIONS (5)
  - Pneumonitis [Recovering/Resolving]
  - Septic shock [Fatal]
  - Bacteraemia [Fatal]
  - Cardiogenic shock [Fatal]
  - Organising pneumonia [Recovering/Resolving]
